FAERS Safety Report 7602769-1 (Version None)
Quarter: 2011Q3

REPORT INFORMATION
  Report Type: 
  Country: None (occurrence: None)
  Receive Date: 20110711
  Receipt Date: 20110711
  Transmission Date: 20111222
  Serious: Yes (Other)
  Sender: FDA-Public Use
  Company Number: None

PATIENT
  Age: 47 Year
  Sex: Male
  Weight: 74.8435 kg

DRUGS (1)
  1. PROPECIA [Suspect]
     Indication: ANDROGENETIC ALOPECIA
     Dosage: 1     1 PER DAY ORAL
     Route: 048
     Dates: start: 20020101, end: 20100101

REACTIONS (4)
  - LOSS OF EMPLOYMENT [None]
  - ECONOMIC PROBLEM [None]
  - MENTAL DISORDER [None]
  - PANIC ATTACK [None]
